FAERS Safety Report 5454251-8 (Version None)
Quarter: 2007Q3

REPORT INFORMATION
  Report Type: 
  Country: None (occurrence: None)
  Receive Date: 20070803
  Receipt Date: 20070215
  Transmission Date: 20080115
  Serious: Yes (Other)
  Sender: FDA-Public Use
  Company Number: 2007SP003167

PATIENT
  Age: 36 Year
  Sex: Female

DRUGS (3)
  1. INTRON A [Suspect]
     Dosage: 40 MIU; ;IV; 20 MIU;TIQ;SC; 15 MIU;TIW;SC
     Route: 042
     Dates: start: 20050501, end: 20050601
  2. INTRON A [Suspect]
     Dosage: 40 MIU; ;IV; 20 MIU;TIQ;SC; 15 MIU;TIW;SC
     Route: 042
     Dates: end: 20060201
  3. INTRON A [Suspect]
     Dosage: 40 MIU; ;IV; 20 MIU;TIQ;SC; 15 MIU;TIW;SC
     Route: 042
     Dates: start: 20050601

REACTIONS (5)
  - CARDIAC FAILURE CONGESTIVE [None]
  - CONGESTIVE CARDIOMYOPATHY [None]
  - FATIGUE [None]
  - HEARING IMPAIRED [None]
  - NEUROPATHY [None]
